FAERS Safety Report 4326228-7 (Version None)
Quarter: 2004Q1

REPORT INFORMATION
  Report Type: 
  Country: None (occurrence: None)
  Receive Date: 20040323
  Receipt Date: 20040115
  Transmission Date: 20041129
  Serious: No
  Sender: FDA-Public Use
  Company Number: USA040156622

PATIENT
  Age: 60 Year
  Sex: Male

DRUGS (4)
  1. CIALIS [Suspect]
     Indication: ERECTILE DYSFUNCTION
     Dosage: 20 MG/AS NEEDED
     Dates: start: 20040111
  2. ACCUPRIL [Concomitant]
  3. NORVASC [Concomitant]
  4. DIOVAN [Concomitant]

REACTIONS (2)
  - MYALGIA [None]
  - PAIN [None]
